FAERS Safety Report 9458626 (Version 1)
Quarter: 2013Q3

REPORT INFORMATION
  Report Type: Spontaneous
  Country: GB (occurrence: GB)
  Receive Date: 20130814
  Receipt Date: 20130814
  Transmission Date: 20140515
  Serious: Yes (Other)
  Sender: FDA-Public Use
  Company Number: GB-009507513-1308GBR004325

PATIENT
  Age: 75 Year
  Sex: Male

DRUGS (2)
  1. BCG LIVE [Suspect]
     Indication: BLADDER CANCER RECURRENT
     Dosage: UNK
     Route: 043
  2. BCG LIVE [Suspect]
     Dosage: UNK
     Route: 043

REACTIONS (3)
  - Orchidectomy [Unknown]
  - Orchitis [Unknown]
  - Bovine tuberculosis [Unknown]
